FAERS Safety Report 23738347 (Version 3)
Quarter: 2024Q2

REPORT INFORMATION
  Report Type: Report from Study
  Country: JP (occurrence: JP)
  Receive Date: 20240412
  Receipt Date: 20240618
  Transmission Date: 20240717
  Serious: No
  Sender: FDA-Public Use
  Company Number: JP-PFIZER INC-PV202400047730

PATIENT
  Age: 7 Year
  Sex: Male
  Weight: 20.6 kg

DRUGS (2)
  1. NGENLA [Suspect]
     Active Substance: SOMATROGON-GHLA
     Dosage: 14.5MG, ONCE A WEEK
     Dates: start: 20230731, end: 202311
  2. NGENLA [Suspect]
     Active Substance: SOMATROGON-GHLA
     Dosage: 14.5MG, ONCE A WEEK
     Dates: start: 20231127, end: 20240131

REACTIONS (1)
  - Injection site pain [Recovered/Resolved]

NARRATIVE: CASE EVENT DATE: 20230926
